FAERS Safety Report 15569434 (Version 1)
Quarter: 2018Q4

REPORT INFORMATION
  Report Type: Spontaneous
  Country: US (occurrence: US)
  Receive Date: 20181031
  Receipt Date: 20181031
  Transmission Date: 20190205
  Serious: Yes (Other)
  Sender: FDA-Public Use
  Company Number: US-BAYER-2018-198512

PATIENT
  Age: 27 Year
  Sex: Female

DRUGS (1)
  1. GADAVIST [Suspect]
     Active Substance: GADOBUTROL
     Indication: NUCLEAR MAGNETIC RESONANCE IMAGING BREAST
     Dosage: 15 ML, ONCE
     Dates: start: 20181023, end: 20181023

REACTIONS (3)
  - Swelling face [None]
  - Dyspnoea [None]
  - Anaphylactic shock [None]

NARRATIVE: CASE EVENT DATE: 20181023
